FAERS Safety Report 10369152 (Version 1)
Quarter: 2014Q1

REPORT INFORMATION
  Report Type: Spontaneous
  Country: US (occurrence: None)
  Receive Date: 20140306
  Receipt Date: 20140306
  Transmission Date: 20141002
  Serious: Yes (Hospitalization)
  Sender: FDA-Public Use
  Company Number: 163-21880-13022117

PATIENT
  Age: 77 Year
  Sex: Female

DRUGS (12)
  1. REVLIMID (LENALIDOMIDE) (10 MILLIGRAM, CAPSULES) [Suspect]
     Indication: MYELODYSPLASTIC SYNDROME
     Dosage: 10 MG, 28 IN 28 D, PO
     Route: 048
     Dates: start: 20120822
  2. ALBUTEROL (SALBUTAMOL) (AEROSOL FOR INHALATION) [Concomitant]
  3. CALCIUM CITRATE VITAMIN D (CALCIUM CITRATE W/COLECALCIFEROL) (TABLETS) [Concomitant]
  4. COUMDIN (WARFARIN SODIUM) (TABLETS) [Concomitant]
  5. FISH OIL (CAPSULES) [Concomitant]
  6. GARLIC OIL (ALLIUM SATIVUM OIL) (CAPSULES) [Concomitant]
  7. GLUCOSAMINE CHONDROITIN (GLUCOSAMINE W/CHONDROITIN SULFATE) (CAPSULES) [Concomitant]
  8. METOPROLOL SUCCINATE (TABLETS) [Concomitant]
  9. PRENATAL VITAMINS (CAPSULES) [Concomitant]
  10. SUPER B COMPLEX (B-KOMPLEX ^LECIVA^) (CAPSULES) [Concomitant]
  11. SYMBICORT (SYMBICORT TURBUHALER ^DRACO^) (UNKNOWN) [Concomitant]
  12. SYSTANE LIQUID GEL (RHINARIS) (GEL) [Concomitant]

REACTIONS (2)
  - Platelet count decreased [None]
  - Weight increased [None]
